FAERS Safety Report 24059089 (Version 2)
Quarter: 2024Q3

REPORT INFORMATION
  Report Type: Spontaneous
  Country: ES (occurrence: ES)
  Receive Date: 20240708
  Receipt Date: 20240709
  Transmission Date: 20241017
  Serious: Yes (Hospitalization)
  Sender: ROCHE
  Company Number: ES-ROCHE-10000007438

PATIENT
  Age: 61 Year
  Sex: Female

DRUGS (2)
  1. FARICIMAB [Suspect]
     Active Substance: FARICIMAB
     Indication: Choroidal neovascularisation
     Route: 050
     Dates: start: 20240612
  2. FARICIMAB [Suspect]
     Active Substance: FARICIMAB
     Indication: Central serous chorioretinopathy

REACTIONS (6)
  - Oedema peripheral [Unknown]
  - Abdominal distension [Unknown]
  - Oropharyngeal pain [Unknown]
  - Aphonia [Unknown]
  - Keratitis [Unknown]
  - Off label use [Unknown]

NARRATIVE: CASE EVENT DATE: 20240617
